FAERS Safety Report 6503112-1 (Version None)
Quarter: 2009Q4

REPORT INFORMATION
  Report Type: 
  Country: None (occurrence: None)
  Receive Date: 20091217
  Receipt Date: 20091209
  Transmission Date: 20100525
  Serious: Yes (Other)
  Sender: FDA-Public Use
  Company Number: PHEH2009US17415

PATIENT
  Sex: Female

DRUGS (22)
  1. EXJADE [Suspect]
     Indication: MYELOPROLIFERATIVE DISORDER
     Dosage: 1000 MG, QD
     Dates: start: 20070730, end: 20091124
  2. EXJADE [Suspect]
     Indication: IRON OVERLOAD
  3. ALBUTEROL [Concomitant]
     Dosage: 2 PUFFS FOUR TIMES A DAY AS NEEDED
  4. ADVAIR DISKUS 100/50 [Concomitant]
     Dosage: 100-50MCG/DOSE, 1 PUFFS TWICE DAILY
  5. ASPIRIN [Concomitant]
     Dosage: 81 MG, QD
  6. EFFEXOR XR [Concomitant]
     Dosage: 75 MG, QD
  7. NEXIUM [Concomitant]
     Dosage: 40 MG, QD
     Route: 048
  8. PSYLLIUM [Concomitant]
     Dosage: UNK, TAKE AS NEEDED
  9. LOMOTIL [Concomitant]
     Dosage: 2.5-0.025 MG,2 TABS FOURS TIMES A DAY AS NEEDED
  10. ANUCORT-HC [Concomitant]
     Dosage: 25MG, AT BEDTIME
  11. CARAFATE [Concomitant]
     Dosage: MIX 1 TAB WITH 1 OX OF WATER BEFORE EACH MEAL AND AT BEDTIME
  12. METAMUCIL [Concomitant]
     Dosage: ONE TEASPOON TWICE DAILY
  13. ROZEREM [Concomitant]
     Dosage: 8 MG, ONE TABLETS AT BEDTIME AS NEEDED
  14. ACETAMINOPHEN AND HYDROCODONE BITARTRATE [Concomitant]
     Indication: PAIN
     Dosage: 5/500MG, OJNE TAB EVERY FOUR HOURS AS NEEDED FOR PAIN
  15. DILAUDID [Concomitant]
     Indication: PAIN
     Dosage: 1 TO 2 TABS EVERY 4 HOURS PRN SEVERE PAIN
  16. NEURONTIN [Concomitant]
     Dosage: 300 MG AT BEDTIME FOR 3 DAYS, THEN 1 CAP BID FOR 3 DAYS, THEN 1 CAP TID FOR 3 WEEKS
     Route: 048
  17. HYDREA [Concomitant]
     Dosage: ONE CAP MON, WED AND FRI
     Route: 048
  18. IMODIUM A-D [Concomitant]
     Dosage: 1 TAB AFTER EACH LOOSE STOOL
  19. EFUDEX [Concomitant]
     Dosage: APPLY TO FACE ONCE DAILY AT BEDTIME
  20. QUESTRAN [Concomitant]
     Dosage: 1 PAK IN WATER, BID
  21. ONDANSETRON [Concomitant]
     Indication: NAUSEA
     Dosage: 1 TABLET 1 HOUR BEFORE RADIATION TREATMENT AND TID PRN FOR NAUSEA THERAFTER
  22. SLOW-MAG [Concomitant]
     Indication: MUSCLE SPASMS
     Dosage: ONE BID FOR LEG CRAMPS

REACTIONS (10)
  - ABDOMINAL PAIN [None]
  - DISEASE PROGRESSION [None]
  - GASTROINTESTINAL DISORDER [None]
  - HAEMORRHOIDS [None]
  - INTRAOCULAR LENS IMPLANT [None]
  - MYELOPROLIFERATIVE DISORDER [None]
  - OPTIC DISC DISORDER [None]
  - OPTIC NERVE DISORDER [None]
  - RECTAL HAEMORRHAGE [None]
  - RETINAL PIGMENTATION [None]
